FAERS Safety Report 10159379 (Version 2)
Quarter: 2014Q2

REPORT INFORMATION
  Report Type: Spontaneous
  Country: US (occurrence: US)
  Receive Date: 20140508
  Receipt Date: 20140508
  Transmission Date: 20141212
  Serious: No
  Sender: FDA-Public Use
  Company Number: US-MYLANLABS-2014S1004457

PATIENT
  Age: 79 Year
  Sex: Male
  Weight: 78.02 kg

DRUGS (9)
  1. ITRACONAZOLE CAPSULES [Suspect]
     Indication: HISTOPLASMOSIS DISSEMINATED
     Route: 048
     Dates: start: 201307, end: 201402
  2. METOPROLOL TARTRATE [Concomitant]
     Route: 048
  3. FUROSEMIDE [Concomitant]
     Route: 048
  4. NAMENDA [Concomitant]
  5. FLUOXETINE [Concomitant]
     Route: 048
  6. DIGOXIN [Concomitant]
  7. MIRTAZAPINE [Concomitant]
  8. LOSARTAN [Concomitant]
     Route: 048
  9. OMEPRAZOLE [Concomitant]

REACTIONS (1)
  - Neuropathy peripheral [Not Recovered/Not Resolved]
